FAERS Safety Report 19893676 (Version 1)
Quarter: 2021Q3

REPORT INFORMATION
  Report Type: Report from Study
  Country: US (occurrence: US)
  Receive Date: 20210929
  Receipt Date: 20210929
  Transmission Date: 20211014
  Serious: No
  Sender: FDA-Public Use
  Company Number: NVSC2021US220625

PATIENT
  Age: 35 Year
  Sex: Male

DRUGS (2)
  1. ENTRESTO [Suspect]
     Active Substance: SACUBITRIL\VALSARTAN
     Indication: CARDIAC FAILURE
     Dosage: 97.1 MG, BID
     Route: 048
     Dates: start: 20210902
  2. ENTRESTO [Suspect]
     Active Substance: SACUBITRIL\VALSARTAN
     Dosage: UNK (97/103)
     Route: 065

REACTIONS (2)
  - Dysuria [Unknown]
  - Weight decreased [Unknown]

NARRATIVE: CASE EVENT DATE: 20210902
